FAERS Safety Report 5740610-2 (Version None)
Quarter: 2008Q2

REPORT INFORMATION
  Report Type: 
  Country: None (occurrence: None)
  Receive Date: 20080516
  Receipt Date: 20080508
  Transmission Date: 20081010
  Serious: Yes (Congenital Anomaly)
  Sender: FDA-Public Use
  Company Number: A0728346A

PATIENT
  Sex: Male
  Weight: 2.2 kg

DRUGS (4)
  1. COMBIVIR [Suspect]
     Indication: HIV INFECTION
     Dates: end: 20071001
  2. EPZICOM [Suspect]
     Indication: HIV INFECTION
     Dates: start: 20071001
  3. KALETRA [Suspect]
     Indication: HIV INFECTION
  4. SUSTIVA [Suspect]
     Indication: HIV INFECTION
     Dosage: 600MG PER DAY
     Dates: end: 20071001

REACTIONS (3)
  - DRUG EXPOSURE DURING PREGNANCY [None]
  - POLYDACTYLY [None]
  - TRISOMY 21 [None]
